FAERS Safety Report 4778982-8 (Version None)
Quarter: 2005Q3

REPORT INFORMATION
  Report Type: 
  Country: None (occurrence: None)
  Receive Date: 20050923
  Receipt Date: 20050918
  Transmission Date: 20060218
  Serious: Yes (Death)
  Sender: FDA-Public Use
  Company Number: 2004-120942-NL

PATIENT
  Age: 60 Year
  Sex: Male

DRUGS (1)
  1. MIRTAZAPINE [Suspect]
     Dosage: DF

REACTIONS (1)
  - DEATH [None]
